FAERS Safety Report 6115177-X (Version None)
Quarter: 2009Q1

REPORT INFORMATION
  Report Type: 
  Country: None (occurrence: None)
  Receive Date: 20090311
  Receipt Date: 20080822
  Transmission Date: 20090719
  Serious: Yes (Death, Hospitalization)
  Sender: FDA-Public Use
  Company Number: US200808004716

PATIENT
  Age: 71 Year
  Sex: Female
  Weight: 48 kg

DRUGS (3)
  1. GEMZAR [Suspect]
     Indication: PANCREATIC CARCINOMA
     Dosage: INTRAVENOUS
     Route: 042
     Dates: start: 20071030, end: 20071212
  2. SUNITINIB (SUNITINIB) [Concomitant]
  3. XELODA [Concomitant]

REACTIONS (2)
  - DISEASE PROGRESSION [None]
  - RENAL FAILURE ACUTE [None]
